FAERS Safety Report 10145495 (Version 1)
Quarter: 2014Q2

REPORT INFORMATION
  Report Type: Report from Study
  Country: CA (occurrence: CA)
  Receive Date: 20140501
  Receipt Date: 20140501
  Transmission Date: 20141212
  Serious: Yes (Other)
  Sender: FDA-Public Use
  Company Number: CA-JNJFOC-20140415586

PATIENT
  Age: 20 Year
  Sex: Female

DRUGS (4)
  1. STELARA [Suspect]
     Indication: PSORIASIS
     Route: 058
  2. STELARA [Suspect]
     Indication: PSORIASIS
     Route: 058
     Dates: start: 20131023
  3. HUMALOG [Concomitant]
     Route: 058
  4. LANTUS [Concomitant]
     Route: 065

REACTIONS (1)
  - Convulsion [Unknown]
